FAERS Safety Report 23502076 (Version 1)
Quarter: 2024Q1

REPORT INFORMATION
  Report Type: Spontaneous
  Country: US (occurrence: US)
  Receive Date: 20240208
  Receipt Date: 20240208
  Transmission Date: 20240409
  Serious: No
  Sender: FDA-Public Use
  Company Number: US-GSK-US2024AMR013969

PATIENT
  Sex: Female

DRUGS (1)
  1. NUCALA [Suspect]
     Active Substance: MEPOLIZUMAB
     Indication: Nasal polyps
     Dosage: UNK

REACTIONS (8)
  - Back pain [Recovering/Resolving]
  - Pain [Unknown]
  - Tenderness [Unknown]
  - Sinusitis [Unknown]
  - Paranasal sinus hypersecretion [Unknown]
  - Fatigue [Unknown]
  - Hypersensitivity [Unknown]
  - Upper respiratory tract infection [Unknown]
